FAERS Safety Report 21752210 (Version 1)
Quarter: 2022Q4

REPORT INFORMATION
  Report Type: Spontaneous
  Country: US (occurrence: US)
  Receive Date: 20221220
  Receipt Date: 20221220
  Transmission Date: 20230112
  Serious: Yes (Other)
  Sender: FDA-Public Use
  Company Number: US-PADAGIS-2022PAD01183

PATIENT

DRUGS (6)
  1. AMILORIDE HYDROCHLORIDE [Suspect]
     Active Substance: AMILORIDE HYDROCHLORIDE
     Indication: Schizophrenia
     Dosage: UNK
     Route: 065
  2. LITHIUM [Suspect]
     Active Substance: LITHIUM
     Indication: Schizophrenia
     Dosage: 450 MG DAILY
     Route: 048
  3. LITHIUM [Suspect]
     Active Substance: LITHIUM
     Dosage: 900 MG DAILY
     Route: 048
  4. HALOPERIDOL [Suspect]
     Active Substance: HALOPERIDOL
     Indication: Schizophrenia
     Dosage: 1 MG DAILY
     Route: 048
  5. LORAZEPAM [Suspect]
     Active Substance: LORAZEPAM
     Indication: Schizophrenia
     Dosage: 1 MG DAILY
     Route: 048
  6. QUETIAPINE [Suspect]
     Active Substance: QUETIAPINE
     Indication: Schizophrenia
     Dosage: 100 MG AT BED TIME
     Route: 048

REACTIONS (1)
  - Drug ineffective for unapproved indication [Unknown]
